FAERS Safety Report 11860650 (Version 1)
Quarter: 2015Q4

REPORT INFORMATION
  Report Type: Spontaneous
  Country: DE (occurrence: DE)
  Receive Date: 20151222
  Receipt Date: 20151222
  Transmission Date: 20160305
  Serious: Yes (Hospitalization)
  Sender: FDA-Public Use
  Company Number: DE-ELI_LILLY_AND_COMPANY-DE201512005082

PATIENT
  Age: 78 Year
  Sex: Male

DRUGS (2)
  1. TAVOR [Concomitant]
     Active Substance: LORAZEPAM
     Dosage: 1 MG, UNK
  2. CYMBALTA [Suspect]
     Active Substance: DULOXETINE HYDROCHLORIDE
     Indication: DEPRESSION
     Dosage: 90 MG, UNK
     Route: 048
     Dates: start: 20151104

REACTIONS (6)
  - Headache [Unknown]
  - Depression [Unknown]
  - Tinnitus [Unknown]
  - Dizziness [Unknown]
  - Visual impairment [Unknown]
  - Speech disorder [Unknown]
